FAERS Safety Report 4323098-8 (Version None)
Quarter: 2004Q1

REPORT INFORMATION
  Report Type: 
  Country: None (occurrence: None)
  Receive Date: 20040322
  Receipt Date: 20040304
  Transmission Date: 20041129
  Serious: Yes (Hospitalization)
  Sender: FDA-Public Use
  Company Number: 193617

PATIENT
  Age: 42 Year
  Sex: Male
  Weight: 86.1834 kg

DRUGS (3)
  1. AVONEX [Suspect]
     Indication: MULTIPLE SCLEROSIS
     Dosage: 30 MCG QW IM
     Route: 030
     Dates: start: 19960101, end: 20030801
  2. AVONEX [Suspect]
     Indication: MULTIPLE SCLEROSIS
     Dosage: 30 MCG QW IM
     Route: 030
     Dates: start: 20030801
  3. ... [Concomitant]

REACTIONS (17)
  - CHILLS [None]
  - DEPRESSION [None]
  - DRY SKIN [None]
  - DYSPHAGIA [None]
  - FATIGUE [None]
  - HYPOAESTHESIA [None]
  - IATROGENIC INJURY [None]
  - INFLUENZA LIKE ILLNESS [None]
  - INJECTION SITE PRURITUS [None]
  - INTERVERTEBRAL DISC PROTRUSION [None]
  - LARYNGITIS [None]
  - PAIN [None]
  - PARAESTHESIA [None]
  - PNEUMONIA ASPIRATION [None]
  - POST PROCEDURAL COMPLICATION [None]
  - SKIN DESQUAMATION [None]
  - VOCAL CORD PARALYSIS [None]
